FAERS Safety Report 4644921-3 (Version None)
Quarter: 2005Q2

REPORT INFORMATION
  Report Type: 
  Country: None (occurrence: None)
  Receive Date: 20050426
  Receipt Date: 20050413
  Transmission Date: 20051028
  Serious: Yes (Hospitalization)
  Sender: FDA-Public Use
  Company Number: GBWYE587514APR05

PATIENT
  Sex: Female
  Weight: 73 kg

DRUGS (4)
  1. ENBREL [Suspect]
     Indication: RHEUMATOID ARTHRITIS
     Route: 058
     Dates: start: 20030901, end: 20031201
  2. PREDNISOLONE [Concomitant]
  3. NAPROXEN [Concomitant]
  4. PARACETAMOL [Concomitant]

REACTIONS (5)
  - DIARRHOEA [None]
  - DYSPNOEA [None]
  - NAUSEA [None]
  - PALPITATIONS [None]
  - PANIC ATTACK [None]
